FAERS Safety Report 15458085 (Version 7)
Quarter: 2024Q3

REPORT INFORMATION
  Report Type: Spontaneous
  Country: CZ (occurrence: CZ)
  Receive Date: 20181003
  Receipt Date: 20240923
  Transmission Date: 20241017
  Serious: Yes (Other)
  Sender: ROCHE
  Company Number: None

PATIENT
  Age: 52 Year
  Sex: Female

DRUGS (11)
  1. BEVACIZUMAB [Suspect]
     Active Substance: BEVACIZUMAB
     Indication: Colorectal cancer metastatic
     Dosage: IN FRAME OF FOLFOX REGIMEN
     Route: 065
     Dates: start: 200910
  2. BEVACIZUMAB [Suspect]
     Active Substance: BEVACIZUMAB
     Dosage: IN FRAME OF FUFA REGIMEN
     Route: 065
     Dates: end: 201109
  3. CAPECITABINE [Suspect]
     Active Substance: CAPECITABINE
     Indication: Colorectal cancer metastatic
     Dosage: TERMINATED AFTER FIRST CYCLE
     Route: 065
     Dates: start: 201201
  4. CAPECITABINE [Suspect]
     Active Substance: CAPECITABINE
     Dosage: MONOTHERAPY
     Route: 065
     Dates: end: 201207
  5. CAPECITABINE [Suspect]
     Active Substance: CAPECITABINE
     Dosage: AFTER 2 CYCLES
     Route: 047
     Dates: start: 201309, end: 201403
  6. LEUCOVORIN CALCIUM [Suspect]
     Active Substance: LEUCOVORIN CALCIUM
     Indication: Colorectal cancer metastatic
     Dosage: IN FRAME OF FOLFOX REGIMEN
     Route: 065
     Dates: start: 200910
  7. LEUCOVORIN CALCIUM [Suspect]
     Active Substance: LEUCOVORIN CALCIUM
     Dosage: IN FRAME OF FUFA REGIMEN
     Route: 065
     Dates: end: 201109
  8. OXALIPLATIN [Suspect]
     Active Substance: OXALIPLATIN
     Indication: Colorectal cancer metastatic
     Dosage: IN FRAME OF FOLFOX REGIMEN
     Route: 042
     Dates: start: 200910, end: 201011
  9. FLUOROURACIL [Suspect]
     Active Substance: FLUOROURACIL
     Indication: Colorectal cancer metastatic
     Dosage: IN FRAME OF FOLFOX REGIMEN
     Route: 065
     Dates: start: 200910
  10. FLUOROURACIL [Suspect]
     Active Substance: FLUOROURACIL
     Dosage: IN FRAME OF FUFA REGIMEN
     Route: 065
     Dates: end: 201109
  11. IRINOTECAN [Suspect]
     Active Substance: IRINOTECAN
     Indication: Colorectal cancer metastatic
     Route: 065
     Dates: start: 201201

REACTIONS (3)
  - Haematotoxicity [Recovered/Resolved]
  - Palmar-plantar erythrodysaesthesia syndrome [Unknown]
  - Mucosal toxicity [Unknown]

NARRATIVE: CASE EVENT DATE: 20120101
